FAERS Safety Report 25329064 (Version 2)
Quarter: 2025Q2

REPORT INFORMATION
  Report Type: Spontaneous
  Country: BR (occurrence: BR)
  Receive Date: 20250519
  Receipt Date: 20250527
  Transmission Date: 20250716
  Serious: Yes (Death, Other)
  Sender: ROCHE
  Company Number: BR-ROCHE-10000282375

PATIENT
  Age: 68 Year
  Sex: Female

DRUGS (8)
  1. ATEZOLIZUMAB [Suspect]
     Active Substance: ATEZOLIZUMAB
     Indication: Small cell lung cancer
     Dosage: D1, EVERY 3 WEEKS FOR 4 CYCLES
     Route: 065
     Dates: start: 20230718, end: 20231009
  2. ATEZOLIZUMAB [Suspect]
     Active Substance: ATEZOLIZUMAB
     Dosage: MAINTENANCE
     Route: 065
     Dates: start: 20231030, end: 20240704
  3. CARBOPLATIN [Concomitant]
     Active Substance: CARBOPLATIN
     Indication: Small cell lung cancer
     Dates: start: 20230718
  4. CARBOPLATIN [Concomitant]
     Active Substance: CARBOPLATIN
     Dates: start: 20240505, end: 20241001
  5. ETOPOSIDE [Concomitant]
     Active Substance: ETOPOSIDE
     Indication: Small cell lung cancer
     Dates: start: 20230718
  6. ETOPOSIDE [Concomitant]
     Active Substance: ETOPOSIDE
     Dates: start: 20240505, end: 20241001
  7. CISPLATIN [Concomitant]
     Active Substance: CISPLATIN
  8. VINORELBINE [Concomitant]
     Active Substance: VINORELBINE TARTRATE
     Dates: start: 20220509, end: 20220801

REACTIONS (3)
  - Acute myeloid leukaemia [Fatal]
  - Myelosuppression [Unknown]
  - Disease progression [Unknown]
